FAERS Safety Report 5643134-6 (Version None)
Quarter: 2008Q1

REPORT INFORMATION
  Report Type: 
  Country: None (occurrence: None)
  Receive Date: 20080227
  Receipt Date: 20080227
  Transmission Date: 20080703
  Serious: No
  Sender: FDA-Public Use
  Company Number: None

PATIENT
  Sex: Female
  Weight: 122.9 kg

DRUGS (1)
  1. PHENYTON SODIUM 1GR CAP [Suspect]
     Indication: CONVULSION
     Dosage: 100 MG  4 TIMES PER DAY PO
     Route: 048

REACTIONS (2)
  - CONVULSION [None]
  - PHARMACEUTICAL PRODUCT COMPLAINT [None]
